FAERS Safety Report 8896920 (Version 1)
Quarter: 2012Q4

REPORT INFORMATION
  Report Type: 
  Country: US (occurrence: US)
  Receive Date: 20121108
  Receipt Date: 20121108
  Transmission Date: 20130627
  Serious: No
  Sender: FDA-Public Use
  Company Number: US-AMGEN-USASP2012028627

PATIENT
  Sex: Female
  Weight: 205 kg

DRUGS (10)
  1. ENBREL [Suspect]
     Indication: PRODUCT USED FOR UNKNOWN INDICATION
     Dosage: 50 mg, qwk
     Route: 058
  2. RELPAX [Concomitant]
     Dosage: 20 mg, UNK
  3. ZOLOFT [Concomitant]
     Dosage: 25 mg, UNK
  4. METHOTREXATE [Concomitant]
     Dosage: 2.5 mg, UNK
  5. ORTHO-CYCLEN [Concomitant]
     Dosage: 2.5/35
  6. LYRICA [Concomitant]
     Dosage: 25 mg, UNK
  7. FOLIC ACID [Concomitant]
     Dosage: 1 mg, UNK
  8. CALCIUM [Concomitant]
     Dosage: 500 UNK, UNK
  9. TYLENOL /00020001/ [Concomitant]
     Dosage: 325 mg, UNK
  10. MELATONIN [Concomitant]
     Dosage: 1 mg, UNK

REACTIONS (2)
  - Sinusitis [Recovered/Resolved]
  - Injection site pain [Unknown]
